FAERS Safety Report 9563693 (Version 1)
Quarter: 2013Q1

REPORT INFORMATION
  Report Type: Spontaneous
  Country: US (occurrence: None)
  Receive Date: 20121227
  Receipt Date: 20121227
  Transmission Date: 20140127
  Serious: Yes (Other)
  Sender: FDA-Public Use
  Company Number: PHEH2012US012644

PATIENT
  Age: 8 Year
  Sex: Male
  Weight: 20 kg

DRUGS (5)
  1. EXJADE [Suspect]
     Indication: IRON OVERLOAD
     Route: 048
     Dates: start: 20120201, end: 201202
  2. HYDROXYUREA (HYDROXYCARBAMIDE) [Suspect]
     Indication: SICKLE CELL ANAEMIA
     Route: 048
     Dates: start: 201201, end: 201202
  3. TYLENOL WITH CODEINE (CODEINE PHOSPHATE, PARACETAMOL) [Concomitant]
  4. FOLIC ACID (FOLIC ACID) [Concomitant]
  5. PENICILLIN (BENZYLPENICILLIN SODIUM) [Concomitant]

REACTIONS (4)
  - Liver function test abnormal [None]
  - Chest pain [None]
  - Pyrexia [None]
  - Vomiting [None]
